FAERS Safety Report 4636959-7 (Version None)
Quarter: 2005Q2

REPORT INFORMATION
  Report Type: 
  Country: None (occurrence: None)
  Receive Date: 20050414
  Receipt Date: 20050310
  Transmission Date: 20051028
  Serious: Yes (Life-Threatening)
  Sender: FDA-Public Use
  Company Number: 10591

PATIENT
  Age: 39 Year
  Sex: Female

DRUGS (4)
  1. DAUNORUBICIN HCL [Suspect]
     Indication: ACUTE MYELOID LEUKAEMIA
  2. CYTARABINE [Suspect]
  3. METHYLPREDNISOLONE [Suspect]
  4. IDARUBICIN HCL [Suspect]

REACTIONS (11)
  - ACUTE RESPIRATORY DISTRESS SYNDROME [None]
  - BONE MARROW DEPRESSION [None]
  - CAESAREAN SECTION [None]
  - DRUG EXPOSURE DURING PREGNANCY [None]
  - INDUCED LABOUR [None]
  - OLIGOHYDRAMNIOS [None]
  - PLACENTAL DISORDER [None]
  - PYREXIA [None]
  - SEPTIC SHOCK [None]
  - STREPTOCOCCAL BACTERAEMIA [None]
  - UTERINE INFECTION [None]
